FAERS Safety Report 5697931-1 (Version None)
Quarter: 2008Q2

REPORT INFORMATION
  Report Type: 
  Country: None (occurrence: None)
  Receive Date: 20080408
  Receipt Date: 20080319
  Transmission Date: 20081010
  Serious: Yes (Hospitalization)
  Sender: FDA-Public Use
  Company Number: US-JNJFOC-20080401600

PATIENT
  Sex: Female
  Weight: 49 kg

DRUGS (2)
  1. ACETAMINOPHEN / CHLORPHENIRAMINE / DEXTROMETHORPHAN / PSEUDOEPHEDRINE [Suspect]
     Indication: DRUG USE FOR UNKNOWN INDICATION
  2. METOCLOPRAMIDE [Suspect]
     Indication: DRUG USE FOR UNKNOWN INDICATION
     Dosage: 1 MG/ML, TOOK 100-200 CC

REACTIONS (2)
  - MULTIPLE DRUG OVERDOSE INTENTIONAL [None]
  - SUICIDE ATTEMPT [None]
